FAERS Safety Report 4352779-5 (Version None)
Quarter: 2004Q2

REPORT INFORMATION
  Report Type: 
  Country: None (occurrence: None)
  Receive Date: 20040429
  Receipt Date: 20040422
  Transmission Date: 20050107
  Serious: Yes (Other)
  Sender: FDA-Public Use
  Company Number: 200403634

PATIENT
  Age: 42 Year
  Sex: Female

DRUGS (4)
  1. MOTRIN IB [Suspect]
     Indication: MUSCULOSKELETAL STIFFNESS
     Dosage: 800 MG, ONCE, PO
     Route: 048
     Dates: start: 20040421, end: 20040421
  2. ACCUPRIL [Concomitant]
  3. METOPROLOL [Concomitant]
  4. TRIAMTERENE AND HYDROCHLOROTHIAZIDE [Concomitant]

REACTIONS (16)
  - BLOOD PRESSURE INCREASED [None]
  - DRUG INEFFECTIVE [None]
  - DYSPHAGIA [None]
  - DYSPNOEA [None]
  - EAR PRURITUS [None]
  - ERYTHEMA [None]
  - HYPERSENSITIVITY [None]
  - LACRIMATION INCREASED [None]
  - RHINORRHOEA [None]
  - SNEEZING [None]
  - SPEECH DISORDER [None]
  - SWELLING FACE [None]
  - THROAT IRRITATION [None]
  - THROAT TIGHTNESS [None]
  - VENTRICULAR EXTRASYSTOLES [None]
  - WHEEZING [None]
